FAERS Safety Report 6171801-7 (Version None)
Quarter: 2009Q2

REPORT INFORMATION
  Report Type: 
  Country: None (occurrence: None)
  Receive Date: 20090429
  Receipt Date: 20090420
  Transmission Date: 20091009
  Serious: Yes (Death)
  Sender: FDA-Public Use
  Company Number: US-ROCHE-624191

PATIENT
  Sex: Male
  Weight: 122.5 kg

DRUGS (12)
  1. PEGASYS [Suspect]
     Dosage: DOSE: 180 MCG / 0.5 UL
     Route: 058
     Dates: start: 20090114
  2. RIBAVIRIN [Suspect]
     Dosage: 3 TABS EVERY MORNING AND 3 TABS EVERY EVENING
     Route: 048
     Dates: start: 20090114
  3. PRILOSEC [Concomitant]
     Dosage: PRILOSEC OTC
     Route: 048
  4. PROTONIX [Concomitant]
     Dosage: TAKEN DAILY
  5. METHADONE [Concomitant]
  6. METHADONE [Concomitant]
  7. CITALOPRAM [Concomitant]
  8. LAMICTAL [Concomitant]
  9. CLONIDINE [Concomitant]
  10. BUPIVACAINE [Concomitant]
  11. MOTRIN [Concomitant]
     Dosage: DOSE: 800 PRN BID
  12. SEROQUEL [Concomitant]
     Dosage: SEROQUEL 40

REACTIONS (1)
  - CARDIAC ARREST [None]
